FAERS Safety Report 6446607-1 (Version None)
Quarter: 2009Q4

REPORT INFORMATION
  Report Type: 
  Country: None (occurrence: None)
  Receive Date: 20091116
  Receipt Date: 20091103
  Transmission Date: 20100525
  Serious: Yes (Other)
  Sender: FDA-Public Use
  Company Number: 8054079

PATIENT

DRUGS (1)
  1. CIMZIA [Suspect]

REACTIONS (2)
  - LUPUS-LIKE SYNDROME [None]
  - PSORIASIS [None]
